FAERS Safety Report 8336902-3 (Version None)
Quarter: 2012Q2

REPORT INFORMATION
  Report Type: 
  Country: None (occurrence: None)
  Receive Date: 20120504
  Receipt Date: 20110518
  Transmission Date: 20120825
  Serious: No
  Sender: FDA-Public Use
  Company Number: US-TEVA-2011002444

PATIENT

DRUGS (3)
  1. ATIVAN [Concomitant]
  2. NUVIGIL [Suspect]
     Route: 048
  3. SEROQUEL [Concomitant]

REACTIONS (1)
  - ROAD TRAFFIC ACCIDENT [None]
